FAERS Safety Report 19172785 (Version 1)
Quarter: 2021Q2

REPORT INFORMATION
  Report Type: Report from Study
  Country: US (occurrence: US)
  Receive Date: 20210423
  Receipt Date: 20210423
  Transmission Date: 20210717
  Serious: Yes (Hospitalization)
  Sender: FDA-Public Use
  Company Number: US-JNJFOC-20210413727

PATIENT
  Age: 23 Year
  Sex: Female

DRUGS (3)
  1. SPRAVATO [Suspect]
     Active Substance: ESKETAMINE
     Indication: DEPRESSION
     Dosage: 56 MG, TOTAL 3 DOSES
     Dates: start: 20201117, end: 20201124
  2. SPRAVATO [Suspect]
     Active Substance: ESKETAMINE
     Dosage: 84 MG, TOTAL 15 DOSES
     Dates: start: 20201201, end: 20210324
  3. SPRAVATO [Suspect]
     Active Substance: ESKETAMINE
     Dates: start: 20210406, end: 20210406

REACTIONS (3)
  - Dissociation [Recovered/Resolved]
  - Suicidal ideation [Unknown]
  - Sedation [Recovered/Resolved]

NARRATIVE: CASE EVENT DATE: 20210406
